FAERS Safety Report 17598940 (Version 1)
Quarter: 2020Q1

REPORT INFORMATION
  Report Type: Spontaneous
  Country: CN (occurrence: CN)
  Receive Date: 20200330
  Receipt Date: 20200330
  Transmission Date: 20200409
  Serious: Yes (Life-Threatening, Hospitalization)
  Sender: FDA-Public Use
  Company Number: CN-PFIZER INC-2020129855

PATIENT
  Age: 23 Year
  Sex: Male
  Weight: 57 kg

DRUGS (6)
  1. SODIUM CHLORIDE. [Concomitant]
     Active Substance: SODIUM CHLORIDE
     Indication: VEHICLE SOLUTION USE
     Dosage: 540 ML, 1X/DAY
     Route: 041
     Dates: start: 20200306, end: 20200306
  2. METHOTREXATE. [Suspect]
     Active Substance: METHOTREXATE
     Indication: CHEMOTHERAPY
     Dosage: 1.6 G, 1X/DAY
     Dates: start: 20200307, end: 20200307
  3. SODIUM CHLORIDE. [Concomitant]
     Active Substance: SODIUM CHLORIDE
     Dosage: 500 ML, 2X/DAY
     Route: 041
     Dates: start: 20200308, end: 20200309
  4. CYTARABINE. [Suspect]
     Active Substance: CYTARABINE
     Indication: CHEMOTHERAPY
     Dosage: 3 G, 2X/DAY
     Route: 041
     Dates: start: 20200308, end: 20200309
  5. RITUXIMAB. [Suspect]
     Active Substance: RITUXIMAB
     Indication: CHEMOTHERAPY
     Dosage: 0.6 G, 1X/DAY
     Route: 041
     Dates: start: 20200306, end: 20200306
  6. SODIUM CHLORIDE. [Concomitant]
     Active Substance: SODIUM CHLORIDE
     Dosage: 236 ML, 1X/DAY
     Dates: start: 20200307, end: 20200307

REACTIONS (7)
  - Bone marrow failure [Recovering/Resolving]
  - Poor quality sleep [Unknown]
  - Hepatic function abnormal [Recovering/Resolving]
  - Depressed mood [Unknown]
  - Tooth disorder [Unknown]
  - Decreased appetite [Unknown]
  - Toothache [Unknown]

NARRATIVE: CASE EVENT DATE: 20200316
